FAERS Safety Report 15824564 (Version 1)
Quarter: 2019Q1

REPORT INFORMATION
  Report Type: Report from Study
  Country: ES (occurrence: ES)
  Receive Date: 20190115
  Receipt Date: 20190115
  Transmission Date: 20190417
  Serious: Yes (Other)
  Sender: FDA-Public Use
  Company Number: ES-TEVA-2019-ES-998062

PATIENT
  Sex: Female

DRUGS (1)
  1. COPAXONE [Suspect]
     Active Substance: GLATIRAMER ACETATE
     Indication: RELAPSING-REMITTING MULTIPLE SCLEROSIS
     Route: 058
     Dates: start: 20150914

REACTIONS (7)
  - Choking [Recovered/Resolved]
  - Body temperature abnormal [Recovered/Resolved]
  - Abdominal rigidity [Recovered/Resolved]
  - Ovulation pain [Recovered/Resolved]
  - Syncope [Recovered/Resolved]
  - Immediate post-injection reaction [Recovered/Resolved]
  - Pain [Recovered/Resolved]
